FAERS Safety Report 17441490 (Version 1)
Quarter: 2020Q1

REPORT INFORMATION
  Report Type: Spontaneous
  Country: AT (occurrence: AT)
  Receive Date: 20200220
  Receipt Date: 20200220
  Transmission Date: 20200409
  Serious: Yes (Death, Hospitalization, Other)
  Sender: FDA-Public Use
  Company Number: AT-MYLANLABS-2020M1018594

PATIENT
  Age: 74 Year
  Sex: Female
  Weight: 88 kg

DRUGS (5)
  1. METAGELAN (METAMIZOLE SODIUM MONOHYDRATE) [Suspect]
     Active Substance: DIPYRONE
     Indication: PAIN
     Dosage: 500 MILLIGRAM, PRN (AS NECESSARY, MAXIMUM 4 X 1 (500MG)
     Dates: start: 20190708, end: 20190820
  2. PANTOPRAZOLE [Suspect]
     Active Substance: PANTOPRAZOLE
     Indication: PRODUCT USED FOR UNKNOWN INDICATION
     Dosage: 1/0/0 (1DF, QD)
  3. CONCOR [Concomitant]
     Active Substance: BISOPROLOL FUMARATE
     Dosage: 1/0/0 (5MG, QD)
  4. EUTHYROX [Concomitant]
     Active Substance: LEVOTHYROXINE SODIUM
     Dosage: 1/0/0 (125 MDG, QD)
  5. SIMVASTATIN. [Concomitant]
     Active Substance: SIMVASTATIN
     Dosage: 0/0/1 (1DF, QD)

REACTIONS (3)
  - Haematoma [Fatal]
  - Pancytopenia [Fatal]
  - Spontaneous haemorrhage [Fatal]

NARRATIVE: CASE EVENT DATE: 20190820
